FAERS Safety Report 16729986 (Version 1)
Quarter: 2019Q3

REPORT INFORMATION
  Report Type: Spontaneous
  Country: FR (occurrence: FR)
  Receive Date: 20190822
  Receipt Date: 20190822
  Transmission Date: 20191005
  Serious: Yes (Hospitalization)
  Sender: FDA-Public Use
  Company Number: FR-TEVA-2019-FR-1094734

PATIENT
  Age: 77 Year
  Sex: Male

DRUGS (3)
  1. CIPROFLOXACINE ACCORD [Suspect]
     Active Substance: CIPROFLOXACIN HYDROCHLORIDE
     Indication: INTERVERTEBRAL DISCITIS
     Dosage: 1500MG
     Route: 048
     Dates: start: 20190710
  2. VANCOMYCIN [Suspect]
     Active Substance: VANCOMYCIN
     Indication: INTERVERTEBRAL DISCITIS
     Dosage: 2 G
     Route: 042
     Dates: start: 20190708, end: 20190726
  3. CEFOTAXIME [Suspect]
     Active Substance: CEFOTAXIME SODIUM
     Indication: INTERVERTEBRAL DISCITIS
     Dosage: 12 G
     Route: 042
     Dates: start: 20190710, end: 20190729

REACTIONS (1)
  - Acute kidney injury [Not Recovered/Not Resolved]

NARRATIVE: CASE EVENT DATE: 20190722
